FAERS Safety Report 17107756 (Version 4)
Quarter: 2020Q3

REPORT INFORMATION
  Report Type: Spontaneous
  Country: US (occurrence: US)
  Receive Date: 20191203
  Receipt Date: 20200812
  Transmission Date: 20201102
  Serious: Yes (Hospitalization, Other)
  Sender: FDA-Public Use
  Company Number: US-PFIZER INC-2019483727

PATIENT
  Sex: Male
  Weight: 106.58 kg

DRUGS (32)
  1. CYCLOSPORINE. [Concomitant]
     Active Substance: CYCLOSPORINE
     Indication: HEART TRANSPLANT
     Dosage: 75 MG, 2X/DAY
     Route: 048
  2. INSULIN [Concomitant]
     Active Substance: INSULIN NOS
     Indication: ORGANIC ERECTILE DYSFUNCTION
     Dosage: UNK, AS NEEDED (U 100 1 ML MISC, USE AS NEEDED UP TO 8 TIMES PER MONTH )
  3. MYCOPHENOLATE [Concomitant]
     Active Substance: MYCOPHENOLIC ACID
     Indication: HEART TRANSPLANT
     Dosage: 500 MG, 2X/DAY
     Route: 048
  4. MYRBETRIQ [Concomitant]
     Active Substance: MIRABEGRON
     Indication: MIXED INCONTINENCE
     Dosage: 50 MG, DAILY
     Route: 048
  5. PRINIVIL [Concomitant]
     Active Substance: LISINOPRIL
     Indication: RENAL DISORDER
  6. TOPROL XL [Concomitant]
     Active Substance: METOPROLOL SUCCINATE
     Indication: RENAL DISORDER
  7. ZYLOPRIM [Concomitant]
     Active Substance: ALLOPURINOL
     Dosage: 100 MG, 1X/DAY(TAKE 100 MG BY MOUTH EVERY EVENING AT 1900)
     Route: 048
  8. CALCIUM CITRATE [Concomitant]
     Active Substance: CALCIUM CITRATE
     Dosage: 500 MG, DAILY(TAKE 500 MG BY MOUTH DAILY (WITH LUNCH))
     Route: 048
  9. LASIX [Concomitant]
     Active Substance: FUROSEMIDE
     Indication: HEART TRANSPLANT
     Dosage: 40 MG, 2X/DAY (TAKE 40 MG IN THE MORNING, AND 40 MG AT NOON)
     Route: 048
  10. TYLENOL PM [Concomitant]
     Active Substance: ACETAMINOPHEN\DIPHENHYDRAMINE
     Indication: SLEEP DISORDER
     Dosage: 1 DF, AS NEEDED (NIGHTLY, DIPHENHYDRAMINE HYDROCHLORIDE: 25MG, PARACETAMOL: 500MG)
     Route: 048
  11. CAVERJECT [Suspect]
     Active Substance: ALPROSTADIL
     Indication: ERECTILE DYSFUNCTION
     Dosage: UNK, WEEKLY
     Dates: start: 199601
  12. FEROSUL [Concomitant]
     Active Substance: FERROUS SULFATE
     Indication: IRON DEFICIENCY
     Dosage: 325 MG, DAILY(TAKE 1 TABLET (325 MG) BY MOUTH DAILY (WITH BREAKFAST))
     Route: 048
  13. PRALUENT [Concomitant]
     Active Substance: ALIROCUMAB
     Indication: DRUG INTOLERANCE
     Dosage: UNK (INJECT 1 ML (150 MG) SUBCUTANEOUS EVERY 14 DAYS )
     Route: 058
  14. ZETIA [Concomitant]
     Active Substance: EZETIMIBE
     Indication: HYPERLIPIDAEMIA
     Dosage: 10 MG, DAILY
     Route: 048
  15. ZESTRIL [Concomitant]
     Active Substance: LISINOPRIL
     Indication: SECONDARY HYPERTENSION
     Dosage: 5 MG, DAILY
     Route: 048
  16. AMOXIL [Concomitant]
     Active Substance: AMOXICILLIN
     Dosage: 2000 MG, UNK (TAKE 4 TABS ONE HOUR BEFORE DENTAL APPT )
     Route: 048
  17. MYRBETRIQ [Concomitant]
     Active Substance: MIRABEGRON
     Indication: POLLAKIURIA
  18. PRINIVIL [Concomitant]
     Active Substance: LISINOPRIL
     Indication: SECONDARY HYPERTENSION
     Dosage: 5 MG, DAILY
     Route: 048
  19. VITAMIN D3 [Concomitant]
     Active Substance: CHOLECALCIFEROL
     Indication: VITAMIN D DEFICIENCY
     Dosage: 50 UG, DAILY (1000 UNITS)
     Route: 048
  20. FLAXSEED [Concomitant]
     Active Substance: FLAX SEED
     Indication: HYPERLIPIDAEMIA
     Dosage: 1000 MG, 3X/DAY
     Route: 048
  21. TYLENOL 8HR [Concomitant]
     Active Substance: ACETAMINOPHEN
     Indication: ARTHRITIS
     Dosage: 650 MG, 2X/DAY
     Route: 048
  22. PRAVACHOL [Concomitant]
     Active Substance: PRAVASTATIN SODIUM
     Indication: HYPERLIPIDAEMIA
     Dosage: UNK, WEEKLY (0.5 TABLETS)
     Route: 048
  23. RESTASIS [Concomitant]
     Active Substance: CYCLOSPORINE
     Indication: HYPERPARATHYROIDISM SECONDARY
     Dosage: 1 GTT, 2X/DAY
     Route: 047
  24. ZESTRIL [Concomitant]
     Active Substance: LISINOPRIL
     Indication: RENAL DISORDER
  25. CAVERJECT [Suspect]
     Active Substance: ALPROSTADIL
     Dosage: UNK, WEEKLY (INSTRUCTIONS: .03? .06 WEEKLY ON SATURDAY)
  26. EDEX [Concomitant]
     Active Substance: ALPROSTADIL
     Indication: ERECTILE DYSFUNCTION
     Dosage: UNK(INJECT 0.25 ? 0.75 ML (5 ? 15 MCG) AS DIRECTED)
  27. PEPCID [Concomitant]
     Active Substance: FAMOTIDINE
     Dosage: 20 MG, 2X/DAY
     Route: 048
  28. SIROLIMUS. [Concomitant]
     Active Substance: SIROLIMUS
     Indication: HEART TRANSPLANT
     Dosage: UNK (ON HOLD STARTING 02SEP FOR SURGERY)
  29. CAVERJECT [Suspect]
     Active Substance: ALPROSTADIL
     Dosage: 10 UG, WEEKLY
     Route: 017
  30. ASA [Concomitant]
     Active Substance: ASPIRIN
     Dosage: 325 MG, DAILY(TAKE 325 MG BY MOUTH DAILY (WITH LUNCH))
     Route: 048
  31. LOVAZA [Concomitant]
     Active Substance: OMEGA-3-ACID ETHYL ESTERS
     Indication: HYPERTRIGLYCERIDAEMIA
     Dosage: 1 G, 2X/DAY
     Route: 048
  32. TOPROL XL [Concomitant]
     Active Substance: METOPROLOL SUCCINATE
     Indication: SECONDARY HYPERTENSION
     Dosage: 50 MG, DAILY
     Route: 048

REACTIONS (1)
  - Viral cardiomyopathy [Recovered/Resolved]
